FAERS Safety Report 10130512 (Version 1)
Quarter: 2014Q2

REPORT INFORMATION
  Report Type: Spontaneous
  Country: US (occurrence: US)
  Receive Date: 20140428
  Receipt Date: 20140428
  Transmission Date: 20141212
  Serious: No
  Sender: FDA-Public Use
  Company Number: US-B.I. PHARMACEUTICALS,INC./RIDGEFIELD-2014-BI-17811BP

PATIENT
  Age: 72 Year
  Sex: Male
  Weight: 123 kg

DRUGS (3)
  1. SPIRIVA [Suspect]
     Indication: CHRONIC OBSTRUCTIVE PULMONARY DISEASE
     Dosage: 18 MCG
     Route: 055
     Dates: start: 20140412
  2. LASIX [Concomitant]
     Indication: HYPERTENSION
     Dosage: 80 MG
     Route: 048
  3. POTASSIUM [Concomitant]
     Dosage: 20 MG
     Route: 048

REACTIONS (1)
  - Blood pressure decreased [Not Recovered/Not Resolved]
